FAERS Safety Report 8929364 (Version 3)
Quarter: 2014Q2

REPORT INFORMATION
  Report Type: Report from Study
  Country: US (occurrence: US)
  Receive Date: 20121127
  Receipt Date: 20140418
  Transmission Date: 20141212
  Serious: Yes (Hospitalization)
  Sender: FDA-Public Use
  Company Number: US-ROCHE-1158706

PATIENT
  Age: 59 Year
  Sex: Female
  Weight: 66.74 kg

DRUGS (4)
  1. RITUXIMAB [Suspect]
     Indication: CHRONIC LYMPHOCYTIC LEUKAEMIA
     Route: 042
     Dates: start: 20120203, end: 20120222
  2. RITUXIMAB [Suspect]
     Route: 042
     Dates: end: 20120317
  3. CYTOXAN [Suspect]
     Indication: CHRONIC LYMPHOCYTIC LEUKAEMIA
     Route: 042
     Dates: start: 20120221, end: 20120317
  4. PENTOSTATIN [Suspect]
     Indication: CHRONIC LYMPHOCYTIC LEUKAEMIA
     Route: 042
     Dates: start: 20120221, end: 20120317

REACTIONS (19)
  - Diarrhoea [Recovered/Resolved]
  - Pyrexia [Recovered/Resolved]
  - Lymphocytic leukaemia [Recovered/Resolved]
  - Dyspnoea [Recovered/Resolved]
  - Fatigue [Recovered/Resolved]
  - Malnutrition [Recovered/Resolved]
  - Hyponatraemia [Recovered/Resolved]
  - Pericardial effusion [Recovered/Resolved]
  - Anaemia [Recovered/Resolved]
  - Generalised oedema [Recovered/Resolved]
  - Hepatic lesion [Recovered/Resolved]
  - Hepatic function abnormal [Recovered/Resolved]
  - Lymphocytic leukaemia [Unknown]
  - Inappropriate antidiuretic hormone secretion [Recovered/Resolved]
  - Diarrhoea [Recovered/Resolved]
  - Asthenia [Recovered/Resolved]
  - Iron deficiency anaemia [Recovered/Resolved]
  - Sinus tachycardia [Recovered/Resolved]
  - Enterococcal infection [Recovered/Resolved]
